FAERS Safety Report 16638811 (Version 1)
Quarter: 2019Q3

REPORT INFORMATION
  Report Type: Spontaneous
  Country: KR (occurrence: KR)
  Receive Date: 20190726
  Receipt Date: 20190726
  Transmission Date: 20191004
  Serious: Yes (Hospitalization)
  Sender: FDA-Public Use
  Company Number: KR-MYLANLABS-2019M1069365

PATIENT

DRUGS (3)
  1. CLOZARIL [Suspect]
     Active Substance: CLOZAPINE
     Indication: PRODUCT USED FOR UNKNOWN INDICATION
     Dosage: 100 MILLIGRAM, QD
     Dates: end: 20190706
  2. BENZTROPINE                        /00012901/ [Suspect]
     Active Substance: BENZTROPINE
     Indication: AKATHISIA
     Dosage: 1 MILLIGRAM
  3. BENZTROPINE                        /00012901/ [Suspect]
     Active Substance: BENZTROPINE
     Dosage: 150 MILLIGRAM
     Dates: start: 201907

REACTIONS (2)
  - Loss of consciousness [Recovering/Resolving]
  - Extra dose administered [Unknown]

NARRATIVE: CASE EVENT DATE: 201907
